FAERS Safety Report 15802119 (Version 2)
Quarter: 2020Q3

REPORT INFORMATION
  Report Type: Spontaneous
  Country: US (occurrence: US)
  Receive Date: 20190109
  Receipt Date: 20200826
  Transmission Date: 20201102
  Serious: Yes (Death, Hospitalization, Other)
  Sender: FDA-Public Use
  Company Number: US-ASTRAZENECA-2019SE00971

PATIENT
  Age: 22117 Day
  Sex: Female

DRUGS (54)
  1. VITAMIN D [Concomitant]
     Active Substance: VITAMIN D NOS
     Indication: NUTRITIONAL SUPPLEMENTATION
     Dates: start: 201212, end: 201710
  2. ATORVASTATIN [Concomitant]
     Active Substance: ATORVASTATIN
  3. FLUTICASONE?SALMETEROL [Concomitant]
  4. ASPIRIN/CAFFEINE [Concomitant]
     Active Substance: ASPIRIN\CAFFEINE
  5. PROTONIX [Suspect]
     Active Substance: PANTOPRAZOLE SODIUM
     Indication: GASTROOESOPHAGEAL REFLUX DISEASE
     Route: 048
     Dates: start: 20160913
  6. PROTONIX [Suspect]
     Active Substance: PANTOPRAZOLE SODIUM
     Indication: GASTROOESOPHAGEAL REFLUX DISEASE
     Dosage: GENERIC
     Route: 065
     Dates: start: 201701
  7. ZOLPIDEM [Concomitant]
     Active Substance: ZOLPIDEM TARTRATE
     Indication: SLEEP DISORDER
     Dates: start: 200909, end: 201001
  8. CLONAZEPAM. [Concomitant]
     Active Substance: CLONAZEPAM
     Indication: ANXIETY
     Dates: start: 201212, end: 201710
  9. BENZONATATE. [Concomitant]
     Active Substance: BENZONATATE
  10. LEVOFLOXACIN. [Concomitant]
     Active Substance: LEVOFLOXACIN
  11. FLUTICASONE. [Concomitant]
     Active Substance: FLUTICASONE
  12. ASPIRIN. [Concomitant]
     Active Substance: ASPIRIN
  13. BUMEX [Concomitant]
     Active Substance: BUMETANIDE
  14. PRILOSEC [Suspect]
     Active Substance: OMEPRAZOLE MAGNESIUM
     Indication: GASTROOESOPHAGEAL REFLUX DISEASE
     Dosage: GENERIC20.0MG UNKNOWN
     Route: 048
     Dates: start: 20140930
  15. DIOVAN [Concomitant]
     Active Substance: VALSARTAN
     Indication: BLOOD PRESSURE MEASUREMENT
     Dates: start: 200912, end: 201602
  16. AMOXICILLIN. [Concomitant]
     Active Substance: AMOXICILLIN
  17. MUPIROCIN. [Concomitant]
     Active Substance: MUPIROCIN
  18. MOVIPREP [Concomitant]
     Active Substance: ASCORBIC ACID\POLYETHYLENE GLYCOL 3350\POTASSIUM CHLORIDE\SODIUM ASCORBATE\SODIUM CHLORIDE\SODIUM SULFATE
  19. PROAIR HFA [Concomitant]
     Active Substance: ALBUTEROL SULFATE
  20. HEPARIN [Concomitant]
     Active Substance: HEPARIN SODIUM
  21. FENTANYL. [Concomitant]
     Active Substance: FENTANYL
  22. CARVEDILOL. [Concomitant]
     Active Substance: CARVEDILOL
  23. VALSARTAN?HYDROCHLOROTHIAZIDE [Concomitant]
     Active Substance: HYDROCHLOROTHIAZIDE\VALSARTAN
  24. ANCEF [Concomitant]
     Active Substance: CEFAZOLIN SODIUM
  25. ANGIOMAX [Concomitant]
     Active Substance: BIVALIRUDIN
  26. PRILOSEC [Suspect]
     Active Substance: OMEPRAZOLE MAGNESIUM
     Indication: GASTROOESOPHAGEAL REFLUX DISEASE
     Route: 048
     Dates: start: 20170118
  27. SPIRIVA [Concomitant]
     Active Substance: TIOTROPIUM BROMIDE MONOHYDRATE
     Indication: INHALATION THERAPY
     Dates: start: 201304, end: 201401
  28. PHENTERMINE. [Concomitant]
     Active Substance: PHENTERMINE
     Indication: DECREASED APPETITE
     Dates: start: 201305
  29. HYDROCOD/ACETA [Concomitant]
  30. NITROGLYCER [Concomitant]
  31. ALBUTEROL. [Concomitant]
     Active Substance: ALBUTEROL
  32. SIMVASTATIN. [Concomitant]
     Active Substance: SIMVASTATIN
  33. NICOTINE. [Concomitant]
     Active Substance: NICOTINE
  34. PRILOSEC OTC [Suspect]
     Active Substance: OMEPRAZOLE MAGNESIUM
     Indication: GASTROOESOPHAGEAL REFLUX DISEASE
     Route: 048
     Dates: start: 2003, end: 2017
  35. BC (ASPIRIN\CAFFEINE) [Concomitant]
     Active Substance: ASPIRIN\CAFFEINE
     Indication: PAIN
  36. AZITHROMYCIN ANHYDROUS. [Concomitant]
     Active Substance: AZITHROMYCIN ANHYDROUS
  37. PREDNISONE. [Concomitant]
     Active Substance: PREDNISONE
  38. METOPROL TAR [Concomitant]
  39. TIOTROPIUM [Concomitant]
     Active Substance: TIOTROPIUM
  40. METHYLPREDNISOLONE. [Concomitant]
     Active Substance: METHYLPREDNISOLONE
     Indication: STEROID THERAPY
     Dates: start: 201009, end: 201709
  41. CRESTOR [Concomitant]
     Active Substance: ROSUVASTATIN CALCIUM
     Indication: BLOOD CHOLESTEROL
     Dates: start: 201209, end: 201307
  42. TOPIRAMATE. [Concomitant]
     Active Substance: TOPIRAMATE
     Indication: PARTIAL SEIZURES
     Dates: start: 201305
  43. CLINDAMYCIN. [Concomitant]
     Active Substance: CLINDAMYCIN
  44. FLUCONAZOLE. [Concomitant]
     Active Substance: FLUCONAZOLE
  45. AMOX/K CLAV [Concomitant]
     Active Substance: AMOXICILLIN\CLAVULANATE POTASSIUM
  46. ALENDRONATE [Concomitant]
     Active Substance: ALENDRONATE SODIUM
  47. BENADRYL [Concomitant]
     Active Substance: DIPHENHYDRAMINE HYDROCHLORIDE
  48. PRILOSEC OTC [Suspect]
     Active Substance: OMEPRAZOLE MAGNESIUM
     Indication: GASTROOESOPHAGEAL REFLUX DISEASE
     Route: 048
     Dates: start: 2003, end: 2014
  49. PRILOSEC [Suspect]
     Active Substance: OMEPRAZOLE MAGNESIUM
     Indication: GASTROOESOPHAGEAL REFLUX DISEASE
     Dosage: GENERIC
     Route: 065
     Dates: start: 201409, end: 201801
  50. COMBIVENT [Concomitant]
     Active Substance: ALBUTEROL SULFATE\IPRATROPIUM BROMIDE
     Indication: INHALATION THERAPY
     Dates: start: 201012, end: 201412
  51. CEPHALEXIN. [Concomitant]
     Active Substance: CEPHALEXIN
  52. HYDROCODONE W/IBUPROFEN [Concomitant]
     Active Substance: HYDROCODONE\IBUPROFEN
  53. TAMIFLU [Concomitant]
     Active Substance: OSELTAMIVIR PHOSPHATE
  54. CODEINE/GG [Concomitant]

REACTIONS (4)
  - Chronic kidney disease [Unknown]
  - Renal failure [Unknown]
  - Acute kidney injury [Unknown]
  - Renal hypertension [Unknown]

NARRATIVE: CASE EVENT DATE: 20150118
